FAERS Safety Report 14678135 (Version 1)
Quarter: 2018Q1

REPORT INFORMATION
  Report Type: Report from Study
  Country: None (occurrence: BR)
  Receive Date: 20180326
  Receipt Date: 20180326
  Transmission Date: 20180509
  Serious: Yes (Other)
  Sender: FDA-Public Use
  Company Number: BR-ABBVIE-18K-020-2275200-00

PATIENT
  Age: 26 Year
  Sex: Male
  Weight: 74 kg

DRUGS (4)
  1. HUMIRA [Suspect]
     Active Substance: ADALIMUMAB
     Dosage: WEEK 2, LOADING DOSE
     Route: 058
     Dates: start: 201701, end: 201701
  2. HUMIRA [Suspect]
     Active Substance: ADALIMUMAB
     Indication: CROHN^S DISEASE
     Dosage: WEEK 0, LOADING DOSE
     Route: 058
     Dates: start: 20170101, end: 20170101
  3. AZATHIOPRINE. [Concomitant]
     Active Substance: AZATHIOPRINE
     Indication: IMMUNODEFICIENCY
  4. HUMIRA [Suspect]
     Active Substance: ADALIMUMAB
     Route: 058
     Dates: start: 2017

REACTIONS (12)
  - Pain [Recovered/Resolved]
  - Nervousness [Not Recovered/Not Resolved]
  - Hypersensitivity [Recovered/Resolved]
  - Abscess [Not Recovered/Not Resolved]
  - Fistula discharge [Not Recovered/Not Resolved]
  - Fear [Unknown]
  - Abscess [Recovered/Resolved]
  - Crohn^s disease [Not Recovered/Not Resolved]
  - Drug effect decreased [Recovering/Resolving]
  - Swelling [Unknown]
  - Fistula [Not Recovered/Not Resolved]
  - Anxiety [Not Recovered/Not Resolved]

NARRATIVE: CASE EVENT DATE: 2017
